FAERS Safety Report 13021758 (Version 3)
Quarter: 2016Q4

REPORT INFORMATION
  Report Type: Spontaneous
  Country: JP (occurrence: JP)
  Receive Date: 20161213
  Receipt Date: 20161222
  Transmission Date: 20170207
  Serious: Yes (Death, Other)
  Sender: FDA-Public Use
  Company Number: JP-CELGENEUS-JPN-2016121922

PATIENT
  Age: 68 Year
  Sex: Female

DRUGS (5)
  1. REVLIMID [Suspect]
     Active Substance: LENALIDOMIDE
     Indication: PLASMA CELL LEUKAEMIA
     Dosage: 10 MG
     Route: 048
  2. MELPHALAN [Suspect]
     Active Substance: MELPHALAN
     Indication: PLASMA CELL LEUKAEMIA
     Route: 065
  3. LENADEX [Suspect]
     Active Substance: DEXAMETHASONE ACETATE
     Dosage: 20 MG
     Route: 065
     Dates: start: 201306
  4. BORTEZOMIB [Suspect]
     Active Substance: BORTEZOMIB
     Indication: PLASMA CELL LEUKAEMIA
     Dosage: 1.3 MG
     Route: 065
     Dates: start: 201306
  5. LENADEX [Suspect]
     Active Substance: DEXAMETHASONE ACETATE
     Indication: PLASMA CELL LEUKAEMIA
     Route: 065

REACTIONS (11)
  - General physical health deterioration [Fatal]
  - Pathological fracture [Unknown]
  - Lung disorder [Unknown]
  - Rash [Unknown]
  - Stomatitis [Unknown]
  - Infection [Recovering/Resolving]
  - Infection [Fatal]
  - Dyspnoea [Fatal]
  - Macroglossia [Fatal]
  - Amyloidosis [Unknown]
  - Plasma cell leukaemia [Unknown]

NARRATIVE: CASE EVENT DATE: 201407
